FAERS Safety Report 15840025 (Version 1)
Quarter: 2019Q1

REPORT INFORMATION
  Report Type: Spontaneous
  Country: US (occurrence: US)
  Receive Date: 20190117
  Receipt Date: 20190117
  Transmission Date: 20190417
  Serious: No
  Sender: FDA-Public Use
  Company Number: US-PFIZER INC-2018078448

PATIENT
  Age: 11 Year
  Sex: Female
  Weight: 29 kg

DRUGS (1)
  1. GENOTROPIN [Suspect]
     Active Substance: SOMATROPIN
     Indication: GROWTH HORMONE DEFICIENCY
     Dosage: 1.6 MG, DAILY (EVERY EVENING)
     Route: 042

REACTIONS (3)
  - Product dose omission [Unknown]
  - Device issue [Unknown]
  - Injection site haemorrhage [Unknown]
